FAERS Safety Report 10994749 (Version 1)
Quarter: 2015Q2

REPORT INFORMATION
  Report Type: Spontaneous
  Country: US (occurrence: US)
  Receive Date: 20150407
  Receipt Date: 20150407
  Transmission Date: 20150821
  Serious: Yes (Other)
  Sender: FDA-Public Use
  Company Number: US-MALLINCKRODT-T201402693

PATIENT
  Age: 58 Year
  Sex: Female

DRUGS (3)
  1. MEDROL [Concomitant]
     Active Substance: METHYLPREDNISOLONE
     Indication: PREMEDICATION
     Dosage: 32 MG 12 HOURS PRIOR TO PROCEDURE
     Route: 065
  2. MEDROL [Concomitant]
     Active Substance: METHYLPREDNISOLONE
     Dosage: 32 MG TWO HOURS PRIOR TO PROCEDURE
     Route: 065
  3. OPTIRAY [Suspect]
     Active Substance: IOVERSOL
     Indication: UROGRAM
     Dosage: 100 ML, SINGLE
     Route: 042
     Dates: start: 20140630, end: 20140630

REACTIONS (5)
  - Sneezing [Unknown]
  - Eye pruritus [Unknown]
  - Throat tightness [Unknown]
  - Pruritus [Unknown]
  - Urticaria [Unknown]

NARRATIVE: CASE EVENT DATE: 20140630
